FAERS Safety Report 13811291 (Version 1)
Quarter: 2017Q3

REPORT INFORMATION
  Report Type: Spontaneous
  Country: US (occurrence: US)
  Receive Date: 20170728
  Receipt Date: 20170728
  Transmission Date: 20171127
  Serious: No
  Sender: FDA-Public Use
  Company Number: US-ROCHE-1004415

PATIENT
  Sex: Male

DRUGS (3)
  1. BONIVA [Suspect]
     Active Substance: IBANDRONATE SODIUM
     Indication: BONE DENSITY DECREASED
  2. BONIVA [Suspect]
     Active Substance: IBANDRONATE SODIUM
     Indication: BONE LOSS
     Route: 065
  3. BONIVA [Suspect]
     Active Substance: IBANDRONATE SODIUM
     Indication: OSTEOPOROSIS

REACTIONS (3)
  - Injection site swelling [Unknown]
  - Erythema [Unknown]
  - Pruritus [Unknown]
